FAERS Safety Report 8793705 (Version 1)
Quarter: 2012Q4

REPORT INFORMATION
  Report Type: 
  Country: PL (occurrence: PL)
  Receive Date: 20120918
  Receipt Date: 20120918
  Transmission Date: 20130627
  Serious: Yes (Hospitalization)
  Sender: FDA-Public Use
  Company Number: PL-B.I. PHARMACEUTICALS,INC./RIDGEFIELD-2012-EU-04575BY

PATIENT
  Age: 41 Year
  Sex: Male
  Weight: 93 kg

DRUGS (11)
  1. TELMISARTAN + HYDROCHLOROTHIAZIDE [Suspect]
     Indication: HYPERTENSION
     Dosage: 80 mg
     Route: 048
     Dates: start: 2006
  2. KETONAL [Suspect]
     Route: 065
  3. PERFALGAN [Suspect]
     Route: 065
  4. RAMIPRIL [Suspect]
     Indication: HYPERTENSION
     Dosage: 5 mg
     Route: 048
  5. EUTHYROX [Concomitant]
     Dates: start: 2009
  6. HEPATIL [Concomitant]
     Dates: start: 2006, end: 20120603
  7. ORTANOL [Concomitant]
     Dates: start: 2006, end: 20120603
  8. KALDYUM [Concomitant]
     Dates: start: 2006, end: 20120603
  9. MAGLEK B6 [Concomitant]
     Dates: start: 2006, end: 20120603
  10. GASTROLIT [Concomitant]
     Dates: start: 20120601, end: 20120606
  11. STOPERAN [Concomitant]
     Dates: start: 20120601, end: 20120603

REACTIONS (13)
  - Pancreatic enzyme abnormality [Unknown]
  - Hepatitis acute [Recovered/Resolved]
  - Renal failure acute [Recovered/Resolved]
  - Diarrhoea [None]
  - Vision blurred [None]
  - Hypoaesthesia [None]
  - Abdominal pain [None]
  - Nausea [None]
  - Vomiting [None]
  - Dehydration [None]
  - Hepatic cyst [None]
  - Congenital cystic kidney disease [None]
  - Escherichia test positive [None]
